FAERS Safety Report 18605171 (Version 2)
Quarter: 2020Q4

REPORT INFORMATION
  Report Type: Spontaneous
  Country: BE (occurrence: BE)
  Receive Date: 20201211
  Receipt Date: 20201215
  Transmission Date: 20210114
  Serious: Yes (Life-Threatening, Hospitalization, Other)
  Sender: FDA-Public Use
  Company Number: BE-PFIZER INC-2020484784

PATIENT
  Age: 41 Year
  Sex: Male

DRUGS (2)
  1. DEPO-MEDROL [Suspect]
     Active Substance: METHYLPREDNISOLONE ACETATE
     Dosage: 80 MG(SLOW RELEASE)(INJECTION)
     Route: 008
  2. DEPO-MEDROL [Suspect]
     Active Substance: METHYLPREDNISOLONE ACETATE
     Indication: POST LAMINECTOMY SYNDROME
     Dosage: 1 DF, (TOTAL)
     Route: 008

REACTIONS (8)
  - Coma [Recovered/Resolved]
  - Brain herniation [Recovered/Resolved]
  - Intracranial hypotension [Recovered/Resolved]
  - Drug ineffective [Unknown]
  - Beta haemolytic streptococcal infection [Recovered/Resolved]
  - Meningitis streptococcal [Recovered/Resolved]
  - Streptococcal sepsis [Recovered/Resolved]
  - Cerebrospinal fistula [Recovered/Resolved]
